FAERS Safety Report 4499779-2 (Version None)
Quarter: 2004Q4

REPORT INFORMATION
  Report Type: 
  Country: None (occurrence: None)
  Receive Date: 20041110
  Receipt Date: 20041110
  Transmission Date: 20050328
  Serious: Yes (Hospitalization, Disabling)
  Sender: FDA-Public Use
  Company Number: None

PATIENT
  Age: 83 Year
  Sex: Male
  Weight: 72 kg

DRUGS (1)
  1. METOCLOPRAMIDE [Suspect]
     Dosage: 10 MG TID

REACTIONS (6)
  - ABASIA [None]
  - ASTHENIA [None]
  - CEREBROVASCULAR ACCIDENT [None]
  - COGWHEEL RIGIDITY [None]
  - GAIT DISTURBANCE [None]
  - HEMIPARESIS [None]
